FAERS Safety Report 6974758-1 (Version None)
Quarter: 2010Q3

REPORT INFORMATION
  Report Type: 
  Country: None (occurrence: None)
  Receive Date: 20100909
  Receipt Date: 20081211
  Transmission Date: 20110219
  Serious: No
  Sender: FDA-Public Use
  Company Number: US-WYE-H07211508

PATIENT
  Age: 30 Year
  Sex: Male
  Weight: 72.64 kg

DRUGS (1)
  1. PRISTIQ [Suspect]
     Indication: DEPRESSION
     Dosage: 50 MG, FREQUENCY UNKNOWN
     Route: 048
     Dates: start: 20081101, end: 20080101

REACTIONS (1)
  - NAUSEA [None]
